FAERS Safety Report 10025944 (Version 1)
Quarter: 2014Q1

REPORT INFORMATION
  Report Type: Spontaneous
  Country: ES (occurrence: None)
  Receive Date: 20140314
  Receipt Date: 20140314
  Transmission Date: 20141002
  Serious: Yes (Hospitalization)
  Sender: FDA-Public Use
  Company Number: 7273854

PATIENT
  Age: 53 Year
  Sex: Female

DRUGS (8)
  1. LEVOTHYROXINE (LEVOTHYROXINE) (LEVOTHYROXINE) [Suspect]
     Indication: PRODUCT USED FOR UNKNOWN INDICATION
  2. PREDNISONE (PREDNISONE) [Suspect]
     Indication: PRODUCT USED FOR UNKNOWN INDICATION
  3. FOLIC ACID (FOLIC ACID) [Suspect]
     Indication: PRODUCT USED FOR UNKNOWN INDICATION
  4. METHOTREXATE (METHOTREXATE) (METHOTREXATE) [Suspect]
     Route: 048
  5. IBUPROFEN (IBUPROFEN) (IBUPROFEN) [Suspect]
     Indication: PRODUCT USED FOR UNKNOWN INDICATION
  6. HYDROXYCHLOROQUINE (HYDROXYCHLOROQUINE) (HYDROCHLOROQUINE) [Suspect]
     Indication: PRODUCT USED FOR UNKNOWN INDICATION
  7. SIMVASTATIN (SIMVASTATIN) (SIMVASTATIN) [Suspect]
     Indication: PRODUCT USED FOR UNKNOWN INDICATION
  8. OMEPRAZOLE (OMEPRAZOLE) (OMPERAZOLE) [Suspect]
     Indication: PRODUCT USED FOR UNKNOWN INDICATION

REACTIONS (17)
  - Pancytopenia [None]
  - Renal failure [None]
  - Erythema [None]
  - Lymphadenopathy [None]
  - Odynophagia [None]
  - Toxicity to various agents [None]
  - Leukopenia [None]
  - Anaemia [None]
  - Thrombocytopenia [None]
  - Hypokalaemia [None]
  - Hypoproteinaemia [None]
  - Mouth ulceration [None]
  - Medication error [None]
  - Herpes virus infection [None]
  - Pyrexia [None]
  - Vomiting [None]
  - Toxicity to various agents [None]
